FAERS Safety Report 12688306 (Version 1)
Quarter: 2016Q3

REPORT INFORMATION
  Report Type: Spontaneous
  Country: TT (occurrence: None)
  Receive Date: 20160825
  Receipt Date: 20160825
  Transmission Date: 20161109
  Serious: Yes (Disabling, Other)
  Sender: FDA-Public Use
  Company Number: None

PATIENT
  Age: 28 Year
  Sex: Female

DRUGS (10)
  1. TRIFLUOPERAZINE, 5 ML [Suspect]
     Active Substance: TRIFLUOPERAZINE\TRIFLUOPERAZINE HYDROCHLORIDE
     Indication: SCHIZOPHRENIA
     Route: 048
     Dates: start: 20160807, end: 20160824
  2. BENZATROPINE MESYLAT, 2 MG [Suspect]
     Active Substance: BENZTROPINE MESYLATE
     Indication: PRODUCT USED FOR UNKNOWN INDICATION
     Dosage: 1 TABLET(S) IN THE MORNING TAKEN BY MOUTH
     Route: 048
     Dates: start: 20160807, end: 20160824
  3. BECOPLEX PLUS IRON [Concomitant]
  4. GINKGO [Concomitant]
     Active Substance: GINKGO
  5. BRAIN SUPPLEMENTS [Concomitant]
  6. NICORETTE [Concomitant]
     Active Substance: NICOTINE
  7. OMEGA 396 [Concomitant]
  8. NEUROZAN PLUS [Concomitant]
  9. FEROGLOBIN [Concomitant]
  10. C-DIAZEPAM [Concomitant]

REACTIONS (6)
  - Vision blurred [None]
  - Mental disorder [None]
  - Confusional state [None]
  - Diabetes mellitus [None]
  - Tremor [None]
  - Memory impairment [None]

NARRATIVE: CASE EVENT DATE: 20160824
